FAERS Safety Report 22863411 (Version 2)
Quarter: 2023Q4

REPORT INFORMATION
  Report Type: Spontaneous
  Country: JP (occurrence: JP)
  Receive Date: 20230824
  Receipt Date: 20231016
  Transmission Date: 20240109
  Serious: Yes (Death, Other)
  Sender: FDA-Public Use
  Company Number: JP-SA-2023SA258088

PATIENT
  Age: 68 Year
  Sex: Male

DRUGS (3)
  1. SARCLISA [Suspect]
     Active Substance: ISATUXIMAB-IRFC
     Indication: Plasma cell myeloma
     Dosage: DAILY DOSE: 700 MG, DOSING FREQUENCY: AS PER PROTOCOL
     Route: 041
     Dates: start: 20220831, end: 20230621
  2. CARFILZOMIB [Concomitant]
     Active Substance: CARFILZOMIB
     Indication: Plasma cell myeloma
     Dosage: DAILY DOSE: 40 MG, DOSING FREQUENCY: AS PER PROTOCOL
     Route: 065
     Dates: start: 20220831, end: 20230621
  3. DEXAMETHASONE [Concomitant]
     Active Substance: DEXAMETHASONE
     Indication: Plasma cell myeloma
     Dosage: DAILY DOSE: 20 MG, DOSING FREQUENCY: AS PER PROTOCOL
     Route: 065
     Dates: start: 20220831, end: 20230621

REACTIONS (4)
  - Disease progression [Fatal]
  - Renal impairment [Fatal]
  - Myeloma cast nephropathy [Fatal]
  - Cardiac failure [Fatal]
